FAERS Safety Report 5130200-7 (Version None)
Quarter: 2006Q4

REPORT INFORMATION
  Report Type: 
  Country: None (occurrence: None)
  Receive Date: 20061013
  Receipt Date: 20061002
  Transmission Date: 20070319
  Serious: Yes (Death)
  Sender: FDA-Public Use
  Company Number: 2006000643

PATIENT
  Sex: 0

DRUGS (3)
  1. ROXICODONE [Suspect]
     Dosage: ORAL
     Route: 048
  2. AMITRIPTYLINE HCL [Suspect]
     Dosage: ORAL
     Route: 048
  3. CITALOPRAM [Suspect]
     Dosage: ORAL
     Route: 048

REACTIONS (2)
  - CARDIAC ARREST [None]
  - RESPIRATORY ARREST [None]
